FAERS Safety Report 12433436 (Version 7)
Quarter: 2019Q3

REPORT INFORMATION
  Report Type: Report from Study
  Country: PA (occurrence: PA)
  Receive Date: 20160603
  Receipt Date: 20190807
  Transmission Date: 20191004
  Serious: Yes (Hospitalization, Other)
  Sender: FDA-Public Use
  Company Number: PHHY2016PA000816

PATIENT
  Age: 62 Year
  Sex: Male
  Weight: 89.34 kg

DRUGS (4)
  1. METFORMIN [Concomitant]
     Active Substance: METFORMIN HYDROCHLORIDE
     Indication: DIABETES MELLITUS
     Dosage: UNK
     Route: 065
  2. INSULIN [Concomitant]
     Active Substance: INSULIN NOS
     Indication: DIABETES MELLITUS
     Dosage: 50 U, QD (40 IU IN THE MORNING AND 10 IU IN EVENING)
     Route: 058
  3. TASIGNA [Suspect]
     Active Substance: NILOTINIB
     Indication: CHRONIC MYELOID LEUKAEMIA
     Dosage: 2 DF, Q12H (AT 9 IN THE MORNING AND AT 9 AT NIGHT)
     Route: 065
  4. CARVEDILOL. [Concomitant]
     Active Substance: CARVEDILOL
     Indication: CARDIAC DISORDER
     Dosage: 1 DF, QD
     Route: 048

REACTIONS (37)
  - Hyperhidrosis [Unknown]
  - Visual impairment [Unknown]
  - Headache [Unknown]
  - Retinal disorder [Unknown]
  - Myocardial infarction [Recovered/Resolved]
  - Chronic myeloid leukaemia [Unknown]
  - Hypoxia [Unknown]
  - Arthralgia [Unknown]
  - Chest pain [Unknown]
  - Post procedural haemorrhage [Unknown]
  - Bone pain [Unknown]
  - Nausea [Unknown]
  - Blood glucose decreased [Unknown]
  - Ocular discomfort [Recovered/Resolved]
  - Platelet count decreased [Unknown]
  - Asthenia [Recovered/Resolved]
  - Thrombosis [Recovering/Resolving]
  - Eye pain [Recovered/Resolved]
  - Malaise [Unknown]
  - Chest discomfort [Unknown]
  - Visual acuity reduced [Unknown]
  - Eye haemorrhage [Not Recovered/Not Resolved]
  - Intraocular pressure increased [Recovering/Resolving]
  - Muscle spasms [Unknown]
  - Syncope [Unknown]
  - Vision blurred [Unknown]
  - Blood cholesterol increased [Unknown]
  - Haemoglobin decreased [Unknown]
  - Pallor [Unknown]
  - Pain [Unknown]
  - Decreased appetite [Unknown]
  - Dizziness [Unknown]
  - Musculoskeletal pain [Recovered/Resolved]
  - Blindness unilateral [Unknown]
  - Eye infection [Unknown]
  - Eye pruritus [Recovered/Resolved]
  - General physical health deterioration [Unknown]

NARRATIVE: CASE EVENT DATE: 201608
